FAERS Safety Report 7763919-X (Version None)
Quarter: 2011Q3

REPORT INFORMATION
  Report Type: 
  Country: None (occurrence: None)
  Receive Date: 20110921
  Receipt Date: 20110913
  Transmission Date: 20111222
  Serious: Yes (Other)
  Sender: FDA-Public Use
  Company Number: CELGENEUS-087-21880-10113313

PATIENT
  Sex: Female
  Weight: 45 kg

DRUGS (21)
  1. VALTREX [Concomitant]
     Dosage: 500 MILLIGRAM
     Route: 048
     Dates: start: 20100101
  2. AMARYL [Concomitant]
     Dosage: 2 MILLIGRAM
     Route: 048
     Dates: start: 20101105, end: 20101112
  3. REVLIMID [Suspect]
     Dosage: 25 MILLIGRAM
     Route: 048
     Dates: start: 20101204, end: 20101214
  4. DIFLUCAN [Concomitant]
     Indication: PROPHYLAXIS
     Dosage: 200 MILLIGRAM
     Route: 048
  5. BASEN [Concomitant]
     Indication: DIABETES MELLITUS
     Dosage: .6 MILLIGRAM
     Route: 048
  6. ZOMETA [Concomitant]
     Dosage: 4 MILLIGRAM
     Route: 041
     Dates: start: 20101119, end: 20101119
  7. ASPIRIN [Concomitant]
     Indication: PROPHYLAXIS
     Dosage: 100 MILLIGRAM
     Route: 048
     Dates: start: 20101203
  8. OMEPRAZOLE [Concomitant]
     Indication: PROPHYLAXIS
     Dosage: 20 MILLIGRAM
     Route: 048
     Dates: start: 20101008
  9. NORVASC [Concomitant]
     Indication: HYPERTENSION
     Dosage: 2.5 MILLIGRAM
     Route: 048
  10. AMARYL [Concomitant]
     Indication: DIABETES MELLITUS
     Dosage: 2 MILLIGRAM
     Route: 048
     Dates: start: 20101008, end: 20101025
  11. AMARYL [Concomitant]
     Dosage: 2 MILLIGRAM
     Route: 048
     Dates: start: 20101203, end: 20101210
  12. REVLIMID [Suspect]
     Indication: MULTIPLE MYELOMA
     Dosage: 25 MILLIGRAM
     Route: 048
     Dates: start: 20101009, end: 20101029
  13. REVLIMID [Suspect]
     Dosage: 25 MILLIGRAM
     Route: 048
     Dates: start: 20101106, end: 20101126
  14. SULFAMETHOXAZOLE [Concomitant]
     Indication: PROPHYLAXIS
     Dosage: 2 TABLET
     Route: 048
  15. AMARYL [Concomitant]
     Dosage: 2 MILLIGRAM
     Route: 048
     Dates: start: 20101119, end: 20101122
  16. ZOMETA [Concomitant]
     Dosage: 4 MILLIGRAM
     Route: 041
     Dates: start: 20101217, end: 20101217
  17. DEXAMETHASONE [Suspect]
     Dosage: 20 MILLIGRAM
     Route: 048
     Dates: start: 20101204, end: 20101207
  18. DEXAMETHASONE [Suspect]
     Dosage: 20 MILLIGRAM
     Route: 048
     Dates: start: 20101106, end: 20101125
  19. BEZATOL SR [Concomitant]
     Dosage: 400 MILLIGRAM
     Route: 048
     Dates: end: 20101014
  20. DEXAMETHASONE [Suspect]
     Indication: MULTIPLE MYELOMA
     Dosage: 20 MILLIGRAM
     Route: 048
     Dates: start: 20101009, end: 20101026
  21. DEXAMETHASONE [Suspect]
     Dosage: 20 MILLIGRAM
     Route: 048
     Dates: start: 20101212, end: 20101214

REACTIONS (7)
  - GASTRIC ULCER [None]
  - DYSGEUSIA [None]
  - DIARRHOEA [None]
  - NEUROPATHY PERIPHERAL [None]
  - ECZEMA [None]
  - DIABETES MELLITUS [None]
  - MALAISE [None]
